FAERS Safety Report 8008790-6 (Version None)
Quarter: 2011Q4

REPORT INFORMATION
  Report Type: 
  Country: None (occurrence: None)
  Receive Date: 20111227
  Receipt Date: 20111212
  Transmission Date: 20120403
  Serious: Yes (Hospitalization, Congenital Anomaly)
  Sender: FDA-Public Use
  Company Number: KE-WATSON-2011-22046

PATIENT
  Sex: Female

DRUGS (4)
  1. CYCLOSPORINE [Suspect]
     Indication: LIVER TRANSPLANT
     Dosage: UNK
     Route: 064
  2. TACROLIMUS [Suspect]
     Indication: LIVER TRANSPLANT
     Dosage: UNK
     Route: 064
  3. PREDNISOLONE [Suspect]
     Indication: LIVER TRANSPLANT
     Dosage: UNK
     Route: 064
  4. LEVOTHYROXINE SODIUM [Suspect]
     Indication: THYROID HORMONE REPLACEMENT THERAPY
     Dosage: UNK
     Route: 064

REACTIONS (5)
  - HYPOXIC-ISCHAEMIC ENCEPHALOPATHY [None]
  - CEREBRAL VENTRICLE DILATATION [None]
  - MICROCEPHALY [None]
  - PARTIAL SEIZURES [None]
  - FOETAL GROWTH RESTRICTION [None]
